FAERS Safety Report 4490364-5 (Version None)
Quarter: 2004Q3

REPORT INFORMATION
  Report Type: 
  Country: None (occurrence: None)
  Receive Date: 20040921
  Receipt Date: 20031231
  Transmission Date: 20050211
  Serious: Yes (Other)
  Sender: FDA-Public Use
  Company Number: 163-20785-04010002

PATIENT
  Age: 37 Year
  Sex: Male
  Weight: 74.6 kg

DRUGS (7)
  1. THALOMID [Suspect]
     Indication: GLIOBLASTOMA
     Dosage: 600 MG, DAILY, ORAL
     Route: 048
     Dates: start: 20030122, end: 20031224
  2. CELEBREX [Suspect]
  3. TEMODAR [Concomitant]
  4. DILANTIN [Concomitant]
  5. ZOFRAN [Concomitant]
  6. NEXIUM [Concomitant]
  7. COLACE (DOCUSATE SODIUM) [Concomitant]

REACTIONS (2)
  - SQUAMOUS CELL CARCINOMA [None]
  - UNEXPECTED THERAPEUTIC DRUG EFFECT [None]
